FAERS Safety Report 11824296 (Version 4)
Quarter: 2016Q1

REPORT INFORMATION
  Report Type: Other
  Country: IT (occurrence: IT)
  Receive Date: 20151210
  Receipt Date: 20160121
  Transmission Date: 20160525
  Serious: Yes (Hospitalization, Other)
  Sender: FDA-Public Use
  Company Number: IT-APOTEX-2015AP014999

PATIENT
  Age: 14 Year
  Sex: Female
  Weight: 60 kg

DRUGS (2)
  1. QUETIAPINE [Suspect]
     Active Substance: QUETIAPINE
     Indication: BIPOLAR DISORDER
     Dosage: 700 MG DAILY
     Route: 048
     Dates: start: 20151111, end: 20151111
  2. EUTIROX [Suspect]
     Active Substance: LEVOTHYROXINE SODIUM
     Indication: AUTOIMMUNE THYROIDITIS
     Dosage: 1500 ?G DAILY
     Route: 048
     Dates: start: 20151111, end: 20151111

REACTIONS (8)
  - Disorientation [Unknown]
  - Overdose [Unknown]
  - Pityriasis rosea [Unknown]
  - Suicide attempt [Unknown]
  - Drug abuse [Unknown]
  - Dyspnoea [Unknown]
  - Mydriasis [Unknown]
  - Sopor [Recovering/Resolving]

NARRATIVE: CASE EVENT DATE: 20151111
